FAERS Safety Report 5185525-6 (Version None)
Quarter: 2006Q4

REPORT INFORMATION
  Report Type: 
  Country: None (occurrence: None)
  Receive Date: 20061220
  Receipt Date: 20060803
  Transmission Date: 20070319
  Serious: No
  Sender: FDA-Public Use
  Company Number: US-GLAXOSMITHKLINE-A0615022A

PATIENT
  Age: 37 Year
  Sex: Female

DRUGS (1)
  1. MEMBERS MARK NTS ORIGINAL, 14MG [Suspect]
     Dosage: 14MG PER DAY
     Route: 062
     Dates: start: 20060702

REACTIONS (2)
  - APPLICATION SITE BRUISING [None]
  - APPLICATION SITE PRURITUS [None]
